FAERS Safety Report 23631894 (Version 3)
Quarter: 2024Q1

REPORT INFORMATION
  Report Type: Report from Study
  Country: DE (occurrence: DE)
  Receive Date: 20240314
  Receipt Date: 20240326
  Transmission Date: 20240409
  Serious: Yes (Death)
  Sender: FDA-Public Use
  Company Number: DE-BoehringerIngelheim-2024-BI-014393

PATIENT
  Age: 62 Year
  Sex: Male
  Weight: 57.8 kg

DRUGS (2)
  1. NINTEDANIB [Suspect]
     Active Substance: NINTEDANIB
     Indication: Lung adenocarcinoma
     Route: 048
     Dates: start: 20171014
  2. DOCETAXEL [Suspect]
     Active Substance: DOCETAXEL\DOCETAXEL ANHYDROUS
     Indication: Lung adenocarcinoma
     Dosage: FORMULATION: LIQUID
     Route: 042
     Dates: start: 20171013

REACTIONS (1)
  - Death [Fatal]

NARRATIVE: CASE EVENT DATE: 20190309
